FAERS Safety Report 4896701-1 (Version None)
Quarter: 2006Q1

REPORT INFORMATION
  Report Type: 
  Country: None (occurrence: None)
  Receive Date: 20060131
  Receipt Date: 20060121
  Transmission Date: 20060701
  Serious: Yes (Other)
  Sender: FDA-Public Use
  Company Number: GB-JNJFOC-20060104556

PATIENT
  Age: 34 Year

DRUGS (5)
  1. TOPAMAX [Suspect]
     Indication: EPILEPSY
     Route: 048
  2. DEXAMETHASONE TAB [Interacting]
     Dosage: 0.5MG IN THE MORNING, 0.75MG IN THE AFTERNOON
     Route: 048
  3. DEXAMETHASONE TAB [Interacting]
     Dosage: ALTERNATE DAYS
     Route: 048
  4. DEXAMETHASONE TAB [Interacting]
     Indication: ADRENOGENITAL SYNDROME
     Dosage: ALTERNATE DAYS
     Route: 048
  5. FLUDROCORTISONE [Concomitant]
     Indication: ADRENOGENITAL SYNDROME
     Route: 048

REACTIONS (3)
  - ADRENAL INSUFFICIENCY [None]
  - DRUG INTERACTION [None]
  - MALAISE [None]
